FAERS Safety Report 10076158 (Version 4)
Quarter: 2014Q2

REPORT INFORMATION
  Report Type: Report from Study
  Country: RU (occurrence: RU)
  Receive Date: 20140414
  Receipt Date: 20140428
  Transmission Date: 20141212
  Serious: Yes (Hospitalization)
  Sender: FDA-Public Use
  Company Number: RU-SA-CAMP-1002992

PATIENT
  Age: 30 Year
  Sex: Female
  Weight: 69.3 kg

DRUGS (12)
  1. ALEMTUZUMAB [Suspect]
     Indication: MULTIPLE SCLEROSIS
     Dosage: 12 MG, QD
     Route: 042
     Dates: start: 20111226, end: 20111228
  2. ALEMTUZUMAB [Suspect]
     Indication: MULTIPLE SCLEROSIS
     Dosage: 12 MG, QD
     Route: 042
     Dates: start: 20101213, end: 20101217
  3. REBIF [Concomitant]
     Indication: MULTIPLE SCLEROSIS
     Dosage: 44 MCG, TIW
     Route: 059
     Dates: start: 20081117, end: 20101118
  4. METHYLPREDNISOLONE [Concomitant]
     Indication: MULTIPLE SCLEROSIS
     Dosage: 1000 MG, QD
     Route: 042
     Dates: start: 20111226, end: 20111228
  5. METHYLPREDNISOLONE [Concomitant]
     Indication: MULTIPLE SCLEROSIS
     Dosage: 1000 MG, QD
     Route: 042
     Dates: start: 20101213, end: 20101215
  6. METHYLPREDNISOLONE [Concomitant]
     Dosage: MONTH 0
     Route: 042
     Dates: start: 20081117, end: 20081119
  7. METHYLPREDNISOLONE [Concomitant]
     Dosage: MONTH 12
     Route: 042
     Dates: start: 20091124, end: 20091126
  8. AMOXICILLIN [Concomitant]
     Indication: NASOPHARYNGITIS
     Route: 048
     Dates: start: 20121206, end: 20121212
  9. FUSAFUNGINE [Concomitant]
     Indication: NASOPHARYNGITIS
     Dosage: INHALATIONAL
     Route: 061
     Dates: start: 20121205, end: 20121212
  10. FOSFOMYCIN [Concomitant]
     Indication: CYSTITIS
     Route: 048
     Dates: start: 20121220, end: 20121220
  11. AKRITOIN [Concomitant]
     Indication: CYSTITIS
     Route: 048
     Dates: start: 20121221, end: 20121225
  12. ESOMEPRAZOLE [Concomitant]
     Indication: SURGERY
     Route: 048
     Dates: start: 201307, end: 201307

REACTIONS (5)
  - Pancreatic fistula [Recovered/Resolved]
  - Pleurisy [Recovered/Resolved]
  - Pancreatitis [Recovered/Resolved]
  - Abdominal pain [Recovered/Resolved]
  - Pancreatic carcinoma [Recovered/Resolved]
